FAERS Safety Report 8889043 (Version 2)
Quarter: 2013Q1

REPORT INFORMATION
  Report Type: Report from Study
  Country: CA (occurrence: CA)
  Receive Date: 20121106
  Receipt Date: 20130326
  Transmission Date: 20140127
  Serious: Yes (Death, Life-Threatening)
  Sender: FDA-Public Use
  Company Number: CA-TEVA-368533USA

PATIENT
  Age: 69 Year
  Sex: Male
  Weight: 101 kg

DRUGS (13)
  1. TREANDA [Suspect]
     Indication: NON-HODGKIN^S LYMPHOMA
     Route: 042
     Dates: start: 20111219
  2. ASAPHEN [Concomitant]
     Dates: start: 2008, end: 20120926
  3. COZAAR [Concomitant]
     Dates: start: 2001, end: 20120926
  4. NEXIUM [Concomitant]
  5. FLOMAX [Concomitant]
  6. VALTREX [Concomitant]
     Dates: start: 20120213, end: 20120926
  7. NAPROSYN [Concomitant]
     Dates: start: 20120808, end: 20120926
  8. NEXIUM [Concomitant]
     Dates: start: 2006, end: 20120926
  9. FLOMAX [Concomitant]
     Dates: start: 2002, end: 20120926
  10. ARTHROTEC [Concomitant]
     Dates: start: 2008, end: 20120926
  11. METFORMIN [Concomitant]
     Dates: start: 2009, end: 20120926
  12. AMLODIPINE [Concomitant]
     Dates: start: 2001, end: 20120926
  13. ATORVASTATIN [Concomitant]
     Dates: start: 2003, end: 20120926

REACTIONS (1)
  - Acute myeloid leukaemia [Fatal]
